FAERS Safety Report 26005552 (Version 1)
Quarter: 2025Q4

REPORT INFORMATION
  Report Type: Report from Study
  Country: CN (occurrence: CN)
  Receive Date: 20251106
  Receipt Date: 20251106
  Transmission Date: 20260118
  Serious: Yes (Other)
  Sender: ROCHE
  Company Number: CN-ROCHE-10000424903

PATIENT

DRUGS (5)
  1. TRASTUZUMAB [Suspect]
     Active Substance: TRASTUZUMAB
     Indication: HER2 positive gastric cancer
     Route: 065
  2. SINTILIMAB [Suspect]
     Active Substance: SINTILIMAB
     Indication: HER2 positive gastric cancer
     Route: 065
  3. CAMRELIZUMAB [Suspect]
     Active Substance: CAMRELIZUMAB
     Indication: HER2 positive gastric cancer
     Route: 065
  4. PEMBROLIZUMAB [Suspect]
     Active Substance: PEMBROLIZUMAB
     Indication: HER2 positive gastric cancer
     Route: 065
  5. TISLELIZUMAB [Suspect]
     Active Substance: TISLELIZUMAB
     Indication: HER2 positive gastric cancer
     Route: 065

REACTIONS (9)
  - Myelosuppression [Unknown]
  - Nausea [Unknown]
  - Rash [Unknown]
  - Vomiting [Unknown]
  - Transaminases increased [Unknown]
  - Pruritus [Unknown]
  - Decreased appetite [Unknown]
  - Hypoaesthesia [Unknown]
  - Pneumonia [Unknown]
